FAERS Safety Report 10263181 (Version 2)
Quarter: 2014Q2

REPORT INFORMATION
  Report Type: Report from Study
  Country: US (occurrence: US)
  Receive Date: 20140626
  Receipt Date: 20140626
  Transmission Date: 20141212
  Serious: Yes (Death)
  Sender: FDA-Public Use
  Company Number: US-MYLANLABS-2014S1005304

PATIENT
  Sex: Female

DRUGS (8)
  1. CLOZAPINE TABLETS [Suspect]
     Route: 048
  2. DOCUSATE SODIUM [Concomitant]
  3. FLONASE /00908302/ [Concomitant]
  4. ASA [Concomitant]
  5. LITHIUM [Concomitant]
  6. PROPRANOLOL [Concomitant]
  7. GABAPENTIN [Concomitant]
  8. NEXIUM [Concomitant]

REACTIONS (1)
  - Death [Fatal]
